FAERS Safety Report 18270469 (Version 4)
Quarter: 2020Q4

REPORT INFORMATION
  Report Type: Spontaneous
  Country: FI (occurrence: FI)
  Receive Date: 20200915
  Receipt Date: 20201030
  Transmission Date: 20210113
  Serious: No
  Sender: FDA-Public Use
  Company Number: FI-SA-2020SA236884

PATIENT

DRUGS (1)
  1. KLEXANE [Suspect]
     Active Substance: ENOXAPARIN
     Indication: EMBOLISM
     Dosage: 0.4 ML, QD (40 MG)
     Route: 065

REACTIONS (5)
  - Injection site bruising [Unknown]
  - Lower limb fracture [Unknown]
  - Nail discolouration [Unknown]
  - Needle issue [Unknown]
  - Fall [Unknown]
